FAERS Safety Report 6435194-X (Version None)
Quarter: 2009Q4

REPORT INFORMATION
  Report Type: 
  Country: None (occurrence: None)
  Receive Date: 20091106
  Receipt Date: 20091026
  Transmission Date: 20100525
  Serious: Yes (Hospitalization)
  Sender: FDA-Public Use
  Company Number: 8052809

PATIENT
  Age: 75 Year
  Sex: Female
  Weight: 59 kg

DRUGS (26)
  1. CERTOLIZUMAB PEGOL [Suspect]
     Indication: RHEUMATOID ARTHRITIS
     Dosage: 400 MG 1/2W SC
     Route: 058
     Dates: start: 20050614, end: 20060529
  2. CERTOLIZUMAB PEGOL [Suspect]
     Indication: RHEUMATOID ARTHRITIS
     Dosage: 400 MG 1/2W SC
     Route: 058
     Dates: start: 20060613, end: 20080108
  3. CERTOLIZUMAB PEGOL [Suspect]
     Indication: RHEUMATOID ARTHRITIS
     Dosage: 200 MG 1/2W SC
     Route: 058
     Dates: start: 20080121
  4. METHOTREXATE [Concomitant]
  5. FOLIC ACID [Concomitant]
  6. PARACETAMOL [Concomitant]
  7. VOLTAREN [Concomitant]
  8. LIGNOCAINE 1% [Concomitant]
  9. NAPROSYN [Concomitant]
  10. SIMVASTATIN [Concomitant]
  11. CARTIA /00002701/ [Concomitant]
  12. TIMOLOL [Concomitant]
  13. RHEUMON [Concomitant]
  14. FORTISIP [Concomitant]
  15. OMEPRAZOLE [Concomitant]
  16. LEVOTHYROXINE SODIUM [Concomitant]
  17. COLECALCIFEROL [Concomitant]
  18. FOSAMAX PLUS D [Concomitant]
  19. LACTULOSE [Concomitant]
  20. LAXOL [Concomitant]
  21. XALATAN [Concomitant]
  22. FRUSEMIDE [Concomitant]
  23. SPIRONOLACTONE [Concomitant]
  24. DICLOFENAC [Concomitant]
  25. OMEPRAZOLE [Concomitant]
  26. COSOPT	/01419801/ [Concomitant]

REACTIONS (20)
  - ANAEMIA MACROCYTIC [None]
  - BLOOD CREATINE INCREASED [None]
  - BLOOD IRON DECREASED [None]
  - BLOOD UREA INCREASED [None]
  - CONSTIPATION [None]
  - DECREASED APPETITE [None]
  - DIVERTICULUM INTESTINAL [None]
  - FEMUR FRACTURE [None]
  - GASTROINTESTINAL HAEMORRHAGE [None]
  - HYPOTHYROIDISM [None]
  - LOBAR PNEUMONIA [None]
  - MACROCYTOSIS [None]
  - MYELOCYTE PRESENT [None]
  - OEDEMA PERIPHERAL [None]
  - OSTEOPOROSIS [None]
  - PNEUMONIA [None]
  - PROTEIN TOTAL DECREASED [None]
  - STASIS DERMATITIS [None]
  - TIBIA FRACTURE [None]
  - WRIST FRACTURE [None]
